FAERS Safety Report 13340290 (Version 1)
Quarter: 2017Q1

REPORT INFORMATION
  Report Type: Report from Study
  Country: None (occurrence: US)
  Receive Date: 20170316
  Receipt Date: 20170316
  Transmission Date: 20170428
  Serious: Yes (Hospitalization, Other)
  Sender: FDA-Public Use
  Company Number: US-ABBVIE-17K-163-1900981-00

PATIENT
  Age: 25 Year
  Sex: Male
  Weight: 57.66 kg

DRUGS (5)
  1. HUMIRA [Suspect]
     Active Substance: ADALIMUMAB
     Dosage: LOADING DOSE, TWO WEEKS AFTER 160 MG DOSE
     Route: 058
     Dates: start: 2016, end: 2016
  2. HUMIRA [Suspect]
     Active Substance: ADALIMUMAB
     Indication: CROHN^S DISEASE
     Dosage: LOADING DOSE
     Route: 058
     Dates: start: 201608, end: 201608
  3. HUMIRA [Suspect]
     Active Substance: ADALIMUMAB
     Dosage: FOUR WEEKS AFTER 160 MG DOSE
     Route: 058
     Dates: start: 201609, end: 201609
  4. HUMIRA [Suspect]
     Active Substance: ADALIMUMAB
     Route: 058
     Dates: start: 201609, end: 201610
  5. HUMIRA [Suspect]
     Active Substance: ADALIMUMAB
     Route: 058
     Dates: start: 201611

REACTIONS (10)
  - Injection site bruising [Not Recovered/Not Resolved]
  - Drug effect decreased [Recovered/Resolved]
  - Injection site papule [Unknown]
  - Haematochezia [Recovered/Resolved]
  - Injection site induration [Not Recovered/Not Resolved]
  - Intestinal haemorrhage [Recovered/Resolved]
  - Impaired healing [Not Recovered/Not Resolved]
  - Laceration [Not Recovered/Not Resolved]
  - Haemoglobin decreased [Recovering/Resolving]
  - Injection site mass [Not Recovered/Not Resolved]

NARRATIVE: CASE EVENT DATE: 2016
